FAERS Safety Report 5409940-8 (Version None)
Quarter: 2007Q3

REPORT INFORMATION
  Report Type: 
  Country: None (occurrence: None)
  Receive Date: 20070809
  Receipt Date: 20070731
  Transmission Date: 20080115
  Serious: Yes (Hospitalization)
  Sender: FDA-Public Use
  Company Number: US-BAXTER-2007BH005445

PATIENT

DRUGS (1)
  1. BUMINATE 5% [Suspect]
     Indication: DRUG USE FOR UNKNOWN INDICATION
     Dosage: DOSE UNIT:UNKNOWN
     Route: 065
     Dates: start: 20070613

REACTIONS (3)
  - BLOOD TEST ABNORMAL [None]
  - CHILLS [None]
  - HYPERTENSION [None]
